FAERS Safety Report 20152467 (Version 1)
Quarter: 2021Q4

REPORT INFORMATION
  Report Type: Spontaneous
  Country: DK (occurrence: DK)
  Receive Date: 20211206
  Receipt Date: 20211206
  Transmission Date: 20220304
  Serious: Yes (Other)
  Sender: FDA-Public Use
  Company Number: DK-AMGEN-DNKSP2021157763

PATIENT
  Age: 47 Year
  Sex: Male
  Weight: 83 kg

DRUGS (4)
  1. CINACALCET HYDROCHLORIDE [Suspect]
     Active Substance: CINACALCET HYDROCHLORIDE
     Indication: Familial hypocalciuric hypercalcaemia
     Dosage: 60 MILLIGRAM, QD
     Route: 065
     Dates: start: 201809
  2. CINACALCET HYDROCHLORIDE [Suspect]
     Active Substance: CINACALCET HYDROCHLORIDE
     Dosage: 60 MILLIGRAM, QD
     Route: 065
     Dates: start: 201901
  3. CINACALCET HYDROCHLORIDE [Suspect]
     Active Substance: CINACALCET HYDROCHLORIDE
     Dosage: 120 MILLIGRAM (60 MILLIGRAM, BID)
     Route: 065
     Dates: start: 201902
  4. VITAMIN D                          /00318501/ [Concomitant]
     Dosage: 50 MICROGRAM, QD
     Route: 065

REACTIONS (2)
  - Parathyroid tumour benign [Recovered/Resolved]
  - Therapy non-responder [Unknown]

NARRATIVE: CASE EVENT DATE: 20190201
